FAERS Safety Report 7091819-X (Version None)
Quarter: 2010Q4

REPORT INFORMATION
  Report Type: 
  Country: None (occurrence: None)
  Receive Date: 20101109
  Receipt Date: 20101102
  Transmission Date: 20110411
  Serious: Yes (Death)
  Sender: FDA-Public Use
  Company Number: US-WATSON-2010-14485

PATIENT
  Age: 58 Year
  Sex: Female

DRUGS (3)
  1. FLUOXETINE [Suspect]
     Indication: DEPRESSION
     Dosage: UNK
     Route: 065
  2. TRAZODONE HYDROCHLORIDE [Suspect]
     Indication: DEPRESSION
     Dosage: UNK
     Route: 048
  3. ESCITALOPRAM OXALATE [Suspect]
     Dosage: UNK
     Route: 065

REACTIONS (4)
  - CARDIAC ARREST [None]
  - COMA [None]
  - LONG QT SYNDROME [None]
  - TORSADE DE POINTES [None]
